FAERS Safety Report 9722435 (Version 1)
Quarter: 2013Q4

REPORT INFORMATION
  Report Type: Spontaneous
  Country: US (occurrence: None)
  Receive Date: 20131127
  Receipt Date: 20131127
  Transmission Date: 20140711
  Serious: Yes (Death)
  Sender: FDA-Public Use
  Company Number: None

PATIENT
  Age: 41 Year
  Sex: Male

DRUGS (2)
  1. MEKINIST [Suspect]
     Indication: MALIGNANT MELANOMA
     Dosage: 1 TABLET, DAILY ORAL
     Dates: start: 20130806, end: 20131122
  2. TAFINLAR [Suspect]
     Indication: MALIGNANT MELANOMA
     Dosage: 2 CAPSULES BID ORAL
     Dates: start: 20130806, end: 20131122

REACTIONS (1)
  - Death [None]
